FAERS Safety Report 5612348-3 (Version None)
Quarter: 2008Q1

REPORT INFORMATION
  Report Type: 
  Country: None (occurrence: None)
  Receive Date: 20080201
  Receipt Date: 20080201
  Transmission Date: 20080703
  Serious: Yes (Other)
  Sender: FDA-Public Use
  Company Number: None

PATIENT
  Sex: Female
  Weight: 52.5 kg

DRUGS (2)
  1. COMBIVIR [Suspect]
     Indication: HIV INFECTION
     Dosage: 150/300 (1 TAB) BID PO
     Route: 048
     Dates: start: 20071203, end: 20080129
  2. LEXIVA [Suspect]
     Indication: HIV INFECTION
     Dosage: 700 MG BID PO
     Route: 048
     Dates: start: 20071203, end: 20080129

REACTIONS (4)
  - ASTHENIA [None]
  - FATIGUE [None]
  - HAEMATOCRIT DECREASED [None]
  - HAEMOGLOBIN DECREASED [None]
